FAERS Safety Report 4575759-3 (Version None)
Quarter: 2005Q1

REPORT INFORMATION
  Report Type: 
  Country: None (occurrence: None)
  Receive Date: 20050201
  Receipt Date: 20050201
  Transmission Date: 20050727
  Serious: Yes (Life-Threatening, Hospitalization)
  Sender: FDA-Public Use
  Company Number: None

PATIENT
  Age: 44 Year
  Sex: Female
  Weight: 77.8 kg

DRUGS (2)
  1. GEMCITABINE  50MG/ M2 [Suspect]
     Indication: CERVIX CARCINOMA
     Dosage: 90 MG Q WEEK IV
     Route: 042
     Dates: start: 20041206, end: 20050110
  2. CISPLATIN [Suspect]
     Indication: CERVIX CARCINOMA
     Dosage: 57 MG Q WEEK IV
     Route: 042
     Dates: start: 20041206, end: 20050110

REACTIONS (3)
  - NEUTROPENIA [None]
  - PULMONARY EMBOLISM [None]
  - THROMBOCYTOPENIA [None]
